FAERS Safety Report 18001724 (Version 2)
Quarter: 2020Q3

REPORT INFORMATION
  Report Type: Spontaneous
  Country: US (occurrence: US)
  Receive Date: 20200709
  Receipt Date: 20200709
  Transmission Date: 20201103
  Serious: Yes (Other)
  Sender: FDA-Public Use
  Company Number: US-PFIZER INC-2020256283

PATIENT
  Age: 30 Year
  Sex: Female
  Weight: 60 kg

DRUGS (10)
  1. ISOFLURANE. [Suspect]
     Active Substance: ISOFLURANE
     Indication: MAINTENANCE OF ANAESTHESIA
     Dosage: 1 % (BY MASK)
     Route: 050
  2. OXYGEN. [Suspect]
     Active Substance: OXYGEN
     Indication: MAINTENANCE OF ANAESTHESIA
     Dosage: UNK (FIO2 = 1.0) (FACE MASK FOR 1 MIN)
     Route: 050
  3. ATROPINE SULFATE. [Suspect]
     Active Substance: ATROPINE SULFATE
     Indication: GENERAL ANAESTHESIA
     Dosage: 0.3 MG
     Route: 042
  4. NITROUS OXIDE. [Suspect]
     Active Substance: NITROUS OXIDE
     Indication: MAINTENANCE OF ANAESTHESIA
     Dosage: UNK (31/MIN; BY MASK)
     Route: 050
  5. OXYGEN. [Suspect]
     Active Substance: OXYGEN
     Dosage: 100 %
  6. OXYGEN. [Suspect]
     Active Substance: OXYGEN
     Dosage: UNK (21/MIN; BY MASK)
     Route: 050
  7. THIOPENTAL SODIUM. [Suspect]
     Active Substance: THIOPENTAL SODIUM
     Indication: GENERAL ANAESTHESIA
     Dosage: 275 MG
     Route: 042
  8. ATROPINE SULFATE. [Suspect]
     Active Substance: ATROPINE SULFATE
     Dosage: 0.5 MG
     Route: 042
  9. FENTANYL CITRATE. [Suspect]
     Active Substance: FENTANYL CITRATE
     Indication: GENERAL ANAESTHESIA
     Dosage: 100 UG
     Route: 042
  10. SUCCINYLCHOLINE CHLORIDE. [Suspect]
     Active Substance: SUCCINYLCHOLINE CHLORIDE
     Indication: GENERAL ANAESTHESIA
     Dosage: UNK (INFUSION)
     Route: 050

REACTIONS (2)
  - Laryngospasm [Recovered/Resolved]
  - Pulmonary oedema [Recovered/Resolved]
